FAERS Safety Report 6687851-8 (Version None)
Quarter: 2010Q2

REPORT INFORMATION
  Report Type: 
  Country: None (occurrence: None)
  Receive Date: 20100409
  Receipt Date: 20090921
  Transmission Date: 20101027
  Serious: Yes (Other)
  Sender: FDA-Public Use
  Company Number: AE 2009138

PATIENT
  Age: 44 Year
  Sex: Male

DRUGS (7)
  1. FAZACLO ODT [Suspect]
     Dosage: 100 MG TID PO
     Route: 048
     Dates: start: 20050921, end: 20090910
  2. TYLENOL (CAPLET) [Concomitant]
  3. MYLANTA [Concomitant]
  4. COGENTIN [Concomitant]
  5. HALDOL [Concomitant]
  6. AMBIEN [Concomitant]
  7. PEPCID [Concomitant]

REACTIONS (1)
  - AGRANULOCYTOSIS [None]
